FAERS Safety Report 15862776 (Version 1)
Quarter: 2019Q1

REPORT INFORMATION
  Report Type: Spontaneous
  Country: DE (occurrence: DE)
  Receive Date: 20190124
  Receipt Date: 20190124
  Transmission Date: 20190417
  Serious: Yes (Hospitalization, Other)
  Sender: FDA-Public Use
  Company Number: DE-HIKMA PHARMACEUTICALS USA INC.-DE-H14001-19-00425

PATIENT
  Age: 77 Year
  Sex: Male
  Weight: 91 kg

DRUGS (17)
  1. SIMVASTATIN. [Concomitant]
     Active Substance: SIMVASTATIN
     Indication: HYPERLIPIDAEMIA
     Route: 048
     Dates: start: 20131104
  2. MARCUMAR [Concomitant]
     Active Substance: PHENPROCOUMON
     Indication: ATRIAL FIBRILLATION
     Dosage: ACCORDING TO INR ()
     Route: 048
  3. IRINOTECAN [Suspect]
     Active Substance: IRINOTECAN
     Indication: COLORECTAL CANCER METASTATIC
     Dosage: DAILY DOSE: 180 MG/M2 MILLIGRAM(S)/SQ. METER EVERY 14 DAY
     Route: 042
     Dates: start: 20140122
  4. PHENPROCOUMON [Suspect]
     Active Substance: PHENPROCOUMON
     Indication: PRODUCT USED FOR UNKNOWN INDICATION
     Dosage: ()
     Route: 065
  5. L-THYROXIN [Concomitant]
     Active Substance: LEVOTHYROXINE SODIUM
     Indication: HYPOTHYROIDISM
     Dosage: DAILY DOSE: 150 ?G MICROGRAM(S) EVERY DAY
     Route: 048
     Dates: start: 20131104
  6. TORASEMID [Concomitant]
     Active Substance: TORSEMIDE
     Indication: RENAL FAILURE
     Route: 048
     Dates: start: 20131104
  7. DIOVAN [Concomitant]
     Active Substance: VALSARTAN
     Indication: CARDIAC FAILURE CHRONIC
     Dosage: DAILY DOSE: 160 MG MILLIGRAM(S) EVERY DAY
     Route: 048
     Dates: start: 20131104
  8. ISOPTIN [Concomitant]
     Active Substance: VERAPAMIL HYDROCHLORIDE
     Indication: ATRIAL FIBRILLATION
     Dosage: DAILY DOSE: 240 MG MILLIGRAM(S) EVERY DAY
     Route: 048
     Dates: start: 20131104
  9. MIFLONIDE [Concomitant]
     Active Substance: BUDESONIDE
     Indication: CHRONIC OBSTRUCTIVE PULMONARY DISEASE
     Route: 055
     Dates: start: 20131104
  10. IRINOTECAN [Suspect]
     Active Substance: IRINOTECAN
     Route: 042
  11. FLUOROURACIL. [Suspect]
     Active Substance: FLUOROURACIL
     Route: 042
     Dates: start: 20140122
  12. SPIRIVA [Concomitant]
     Active Substance: TIOTROPIUM BROMIDE MONOHYDRATE
     Indication: CHRONIC OBSTRUCTIVE PULMONARY DISEASE
     Route: 055
     Dates: start: 20131104
  13. FLUOROURACIL. [Suspect]
     Active Substance: FLUOROURACIL
     Indication: COLORECTAL CANCER METASTATIC
     Dosage: DAILY DOSE: 2400 MG/M2 MILLIGRAM(S)/SQ. METER EVERY 14 DAY
     Route: 042
     Dates: start: 20140122
  14. BEVACIZUMAB. [Suspect]
     Active Substance: BEVACIZUMAB
     Indication: COLORECTAL CANCER METASTATIC
     Dosage: DAILY DOSE: 5 MG/KG MILLIGRAM(S)/KILOGRAM EVERY 14 DAY
     Route: 042
     Dates: start: 20140122
  15. BEVACIZUMAB. [Suspect]
     Active Substance: BEVACIZUMAB
     Route: 042
  16. ALLOPURINOL. [Concomitant]
     Active Substance: ALLOPURINOL
     Indication: HYPERURICAEMIA
     Route: 048
  17. ALLOPURINOL. [Concomitant]
     Active Substance: ALLOPURINOL
     Route: 048
     Dates: start: 20131104

REACTIONS (6)
  - Hypotension [Not Recovered/Not Resolved]
  - Dehydration [Not Recovered/Not Resolved]
  - Pneumonia [Recovered/Resolved]
  - Acute kidney injury [Unknown]
  - Prerenal failure [Not Recovered/Not Resolved]
  - Enteritis infectious [Unknown]

NARRATIVE: CASE EVENT DATE: 20140205
